FAERS Safety Report 15821468 (Version 2)
Quarter: 2020Q1

REPORT INFORMATION
  Report Type: Spontaneous
  Country: US (occurrence: US)
  Receive Date: 20190114
  Receipt Date: 20200206
  Transmission Date: 20200409
  Serious: No
  Sender: FDA-Public Use
  Company Number: US-ALLERGAN-1840776US

PATIENT
  Sex: Female

DRUGS (5)
  1. URSO 250 [Suspect]
     Active Substance: URSODIOL
     Indication: PRIMARY BILIARY CHOLANGITIS
     Dosage: 500 MG, QD
     Route: 048
  2. URSO 250 [Suspect]
     Active Substance: URSODIOL
     Dosage: 500 MG, BID
     Route: 048
  3. TOPROL XL [Concomitant]
     Active Substance: METOPROLOL SUCCINATE
     Indication: HYPERTENSION
     Dosage: 25 MG, QD
     Route: 048
  4. URSO 250 [Suspect]
     Active Substance: URSODIOL
     Dosage: 3 PILLS PER DAY
     Route: 048
     Dates: start: 1998
  5. SYNTHROID [Suspect]
     Active Substance: LEVOTHYROXINE SODIUM
     Indication: HYPOTHYROIDISM
     Dosage: UNK
     Route: 048

REACTIONS (7)
  - Alopecia [Not Recovered/Not Resolved]
  - Vertigo [Recovering/Resolving]
  - Intentional product misuse [Unknown]
  - Inappropriate schedule of product administration [Unknown]
  - Abdominal discomfort [Recovered/Resolved]
  - Nausea [Recovered/Resolved]
  - Hepatic enzyme increased [Unknown]
